FAERS Safety Report 4559414-1 (Version None)
Quarter: 2005Q1

REPORT INFORMATION
  Report Type: 
  Country: None (occurrence: None)
  Receive Date: 20050119
  Receipt Date: 20050107
  Transmission Date: 20050727
  Serious: Yes (Hospitalization)
  Sender: FDA-Public Use
  Company Number: 041-0981-M0000024

PATIENT
  Age: 52 Year
  Sex: Male
  Weight: 58.6 kg

DRUGS (2)
  1. ATORVASTATIN [Suspect]
     Indication: HYPERCHOLESTEROLAEMIA
     Dosage: 10 MG (DAILY), ORAL
     Route: 048
     Dates: start: 19981124, end: 19990118
  2. ACETYLSALICYLIC ACID SRT [Concomitant]

REACTIONS (15)
  - ADJUSTMENT DISORDER WITH MIXED DISTURBANCE OF EMOTION AND CONDUCT [None]
  - BACK PAIN [None]
  - DEPRESSION [None]
  - DYSPHORIA [None]
  - INADEQUATE ANALGESIA [None]
  - INSOMNIA [None]
  - NECK PAIN [None]
  - NERVOUS SYSTEM DISORDER [None]
  - PAIN [None]
  - PARAESTHESIA [None]
  - PSYCHOSOMATIC DISEASE [None]
  - PSYCHOTIC DISORDER [None]
  - SENSORY DISTURBANCE [None]
  - SOMATOFORM DISORDER [None]
  - THERAPEUTIC PRODUCT INEFFECTIVE [None]
